FAERS Safety Report 17868140 (Version 1)
Quarter: 2020Q2

REPORT INFORMATION
  Report Type: Spontaneous
  Country: FR (occurrence: FR)
  Receive Date: 20200605
  Receipt Date: 20200605
  Transmission Date: 20200714
  Serious: Yes (Life-Threatening, Hospitalization, Other)
  Sender: FDA-Public Use
  Company Number: FR-009507513-2006FRA000674

PATIENT
  Age: 36 Year
  Sex: Female
  Weight: 71 kg

DRUGS (22)
  1. MYAMBUTOL [Suspect]
     Active Substance: ETHAMBUTOL HYDROCHLORIDE
     Indication: TUBERCULOSIS
     Dosage: 1200 MG, QD
     Route: 065
     Dates: start: 20080131
  2. IZILOX [Suspect]
     Active Substance: MOXIFLOXACIN HYDROCHLORIDE
     Indication: TUBERCULOSIS
     Dosage: 1 DOSAGE FORM, QD
     Route: 065
     Dates: start: 20080728, end: 20080821
  3. DOLIPRANE [Concomitant]
     Active Substance: ACETAMINOPHEN
     Dosage: UNK
     Route: 048
     Dates: end: 20080506
  4. ETHAMBUTOL [Suspect]
     Active Substance: ETHAMBUTOL HYDROCHLORIDE
     Indication: TUBERCULOSIS
     Dosage: UNK
     Route: 065
     Dates: start: 200802, end: 20080506
  5. RIFADIN [Interacting]
     Active Substance: RIFAMPIN
     Indication: TUBERCULOSIS
     Dosage: STRENGTH:300 MG
     Route: 065
     Dates: start: 20080717, end: 20080801
  6. RIFATER [Suspect]
     Active Substance: ISONIAZID\PYRAZINAMIDE\RIFAMPIN
     Indication: TUBERCULOSIS
     Dosage: UNK
     Route: 065
     Dates: start: 200802, end: 20080506
  7. CONTRAMAL [Concomitant]
     Active Substance: TRAMADOL HYDROCHLORIDE
     Dosage: UNK
     Route: 048
     Dates: start: 20080506
  8. AMIKLIN [Concomitant]
     Active Substance: AMIKACIN SULFATE
     Indication: BONE TUBERCULOSIS
     Dosage: 1 GRAM, QD
     Dates: start: 20080717, end: 20080801
  9. PIRILENE [Suspect]
     Active Substance: PYRAZINAMIDE
     Indication: TUBERCULOSIS
     Dosage: UNK
     Route: 016
     Dates: start: 200802, end: 20080506
  10. ETHAMBUTOL [Suspect]
     Active Substance: ETHAMBUTOL HYDROCHLORIDE
     Dosage: UNK
     Route: 065
     Dates: start: 20080717, end: 20080729
  11. RIFINAH [Suspect]
     Active Substance: ISONIAZID\RIFAMPIN
     Indication: TUBERCULOSIS
     Dosage: 2 DOSAGE FORM, QD
     Route: 065
     Dates: start: 20080506, end: 20080611
  12. PIRILENE [Suspect]
     Active Substance: PYRAZINAMIDE
     Dosage: 1500 MG, QD
     Route: 065
     Dates: start: 20080729, end: 20080811
  13. RIFADIN [Interacting]
     Active Substance: RIFAMPIN
     Indication: TUBERCULOSIS
     Dosage: STRENGTH:300 MG (TAB) STRENGTH: 100 MG (ORAL SOLUTION)
     Route: 065
     Dates: start: 20080802
  14. RIFATER [Suspect]
     Active Substance: ISONIAZID\PYRAZINAMIDE\RIFAMPIN
     Indication: TUBERCULOSIS
     Dosage: 6 DOSAGE FORM, QD
     Route: 065
     Dates: start: 20080131
  15. RIFATER [Suspect]
     Active Substance: ISONIAZID\PYRAZINAMIDE\RIFAMPIN
     Dosage: UNK
     Route: 065
     Dates: start: 20080716
  16. XANAX [Concomitant]
     Active Substance: ALPRAZOLAM
     Dosage: UNK, AS NECESSARY
     Dates: start: 20080614, end: 20150624
  17. SPASFON [PHLOROGLUCINOL;TRIMETHYLPHLOROGLUCINOL] [Concomitant]
     Active Substance: PHLOROGLUCINOL\1,3,5-TRIMETHOXYBENZENE
     Dosage: UNK; AS NECESSARY
     Dates: start: 20080614, end: 20150624
  18. RIFADIN [Interacting]
     Active Substance: RIFAMPIN
     Indication: TUBERCULOSIS
     Dosage: UNK
     Route: 065
  19. MYAMBUTOL [Suspect]
     Active Substance: ETHAMBUTOL HYDROCHLORIDE
     Dosage: 1400 MG, QD
     Route: 065
     Dates: start: 20080717, end: 20080729
  20. PYRAZINAMIDE. [Concomitant]
     Active Substance: PYRAZINAMIDE
     Dosage: UNK
     Dates: start: 20080729, end: 20080811
  21. IMPLANON [Suspect]
     Active Substance: ETONOGESTREL
     Indication: CONTRACEPTION
     Dosage: IMPLANT
     Route: 065
     Dates: start: 2006
  22. TRANSIPEG [Concomitant]
     Dosage: UNK
     Dates: start: 20080614, end: 20150624

REACTIONS (15)
  - Fatigue [Recovered/Resolved with Sequelae]
  - Hepatocellular injury [Recovered/Resolved]
  - Coma [Unknown]
  - Cholestasis [Recovered/Resolved]
  - Exposure during pregnancy [Unknown]
  - Pregnancy with implant contraceptive [Unknown]
  - Malaise [Recovered/Resolved with Sequelae]
  - Hepatic encephalopathy [Unknown]
  - Dry skin [Recovered/Resolved]
  - Abdominal distension [Recovered/Resolved]
  - Neutropenia [Unknown]
  - Hepatitis fulminant [Recovered/Resolved with Sequelae]
  - Vomiting [Recovered/Resolved]
  - Drug interaction [Unknown]
  - Nausea [Recovered/Resolved]

NARRATIVE: CASE EVENT DATE: 200805
